FAERS Safety Report 9197286 (Version 1)
Quarter: 2013Q1

REPORT INFORMATION
  Report Type: Spontaneous
  Country: US (occurrence: US)
  Receive Date: 20130328
  Receipt Date: 20130328
  Transmission Date: 20140127
  Serious: No
  Sender: FDA-Public Use
  Company Number: US-ASTRAZENECA-2013SE14266

PATIENT
  Age: 83 Year
  Sex: Female
  Weight: 76.7 kg

DRUGS (5)
  1. TOPROL-XL [Suspect]
     Indication: HYPERTENSION
     Dosage: GENERIC
     Route: 048
  2. TOPROL-XL [Suspect]
     Indication: HYPERTENSION
     Route: 048
  3. TOPROL-XL [Suspect]
     Indication: HYPERTENSION
     Route: 048
  4. GENERIC PLAVIX [Concomitant]
     Indication: CARDIOVASCULAR INSUFFICIENCY
     Dosage: 75MG
  5. TRIAMTERENE/HYDROCHLOROTHIAZIDE [Concomitant]
     Indication: BLOOD PRESSURE
     Dosage: 37MG/25MG

REACTIONS (3)
  - Blood pressure orthostatic increased [Unknown]
  - Cardiovascular insufficiency [Unknown]
  - Malaise [Unknown]
